FAERS Safety Report 5102219-3 (Version None)
Quarter: 2006Q3

REPORT INFORMATION
  Report Type: 
  Country: None (occurrence: None)
  Receive Date: 20060912
  Receipt Date: 20060901
  Transmission Date: 20061208
  Serious: Yes (Other)
  Sender: FDA-Public Use
  Company Number: 2006SE04776

PATIENT
  Sex: Male

DRUGS (1)
  1. CASODEX [Suspect]
     Indication: PROSTATE CANCER
     Route: 048

REACTIONS (4)
  - BULBAR PALSY [None]
  - FACIAL PARESIS [None]
  - MUSCLE ATROPHY [None]
  - MUSCLE CONTRACTIONS INVOLUNTARY [None]
